FAERS Safety Report 7061461-5 (Version None)
Quarter: 2010Q4

REPORT INFORMATION
  Report Type: 
  Country: None (occurrence: None)
  Receive Date: 20101026
  Receipt Date: 20101013
  Transmission Date: 20110411
  Serious: Yes (Life-Threatening)
  Sender: FDA-Public Use
  Company Number: GB-ELI_LILLY_AND_COMPANY-GB201010002699

PATIENT
  Age: 43 Year
  Sex: Male

DRUGS (4)
  1. ZYPREXA [Suspect]
     Dosage: 10 MG, UNK
     Route: 030
     Dates: start: 20100903
  2. METHADONE [Concomitant]
     Dosage: 40 MG, UNK
     Route: 048
     Dates: start: 20100729
  3. CARBAMAZEPINE [Concomitant]
     Indication: HYPERTHYROIDISM
     Dosage: 20 MG, DAILY (1/D)
     Route: 048
     Dates: start: 20100822
  4. PROPRANOLOL [Concomitant]
     Indication: HYPERTHYROIDISM
     Dosage: 40 MG, 3/D
     Route: 048
     Dates: start: 20100822

REACTIONS (3)
  - MIOSIS [None]
  - RESPIRATORY DEPRESSION [None]
  - UNRESPONSIVE TO STIMULI [None]
